FAERS Safety Report 9210974 (Version 1)
Quarter: 2013Q2

REPORT INFORMATION
  Report Type: Spontaneous
  Country: AU (occurrence: AU)
  Receive Date: 20130404
  Receipt Date: 20130404
  Transmission Date: 20140414
  Serious: Yes (Life-Threatening, Hospitalization)
  Sender: FDA-Public Use
  Company Number: AU-B.I. PHARMACEUTICALS,INC./RIDGEFIELD-2012-AU-01523AU

PATIENT
  Age: 77 Year
  Sex: Male
  Weight: 87 kg

DRUGS (4)
  1. PRADAXA [Suspect]
     Indication: ATRIAL FIBRILLATION
     Dates: start: 2011, end: 20120823
  2. ROSUVASTATIN [Concomitant]
     Dosage: 20 MG
     Dates: start: 2010
  3. ODRIK [Concomitant]
     Dosage: 2 MG
     Dates: start: 2010
  4. SIGMAXIN [Concomitant]
     Dosage: 62.5 MCG
     Dates: start: 2010

REACTIONS (2)
  - Thrombocytopenia [Recovered/Resolved]
  - Haemorrhage [Unknown]
